FAERS Safety Report 9541697 (Version 1)
Quarter: 2013Q3

REPORT INFORMATION
  Report Type: Spontaneous
  Country: US (occurrence: None)
  Receive Date: 20130919
  Receipt Date: 20130919
  Transmission Date: 20140515
  Serious: Yes (Other)
  Sender: FDA-Public Use
  Company Number: None

PATIENT
  Age: 34 Year
  Sex: Female
  Weight: 81.65 kg

DRUGS (2)
  1. EXJADE 500MG NOVARTIS [Suspect]
     Dosage: 3500MG QD ORAL
     Route: 048
     Dates: start: 20120618, end: 20130917
  2. KEPPRA [Concomitant]

REACTIONS (1)
  - Iron overload [None]
